FAERS Safety Report 9216571 (Version 2)
Quarter: 2013Q2

REPORT INFORMATION
  Report Type: Spontaneous
  Country: AU (occurrence: AU)
  Receive Date: 20130408
  Receipt Date: 20130417
  Transmission Date: 20140414
  Serious: Yes (Death, Hospitalization)
  Sender: FDA-Public Use
  Company Number: AU-B.I. PHARMACEUTICALS,INC./RIDGEFIELD-2013-AU-00416AU

PATIENT
  Age: 85 Year
  Sex: Male

DRUGS (7)
  1. PRADAXA [Suspect]
     Indication: ATRIAL FIBRILLATION
     Dosage: 220 MG
     Dates: start: 20110725
  2. MELIZIDE [Concomitant]
  3. DIABEX [Concomitant]
  4. BICOR [Concomitant]
  5. RAMIPRIL [Concomitant]
  6. CRESTOR [Concomitant]
  7. LASIX [Concomitant]

REACTIONS (2)
  - Death [Fatal]
  - Haemoglobin decreased [Unknown]
